FAERS Safety Report 11922681 (Version 1)
Quarter: 2016Q1

REPORT INFORMATION
  Report Type: Spontaneous
  Country: IN (occurrence: IN)
  Receive Date: 20160115
  Receipt Date: 20160115
  Transmission Date: 20160526
  Serious: Yes (Other)
  Sender: FDA-Public Use
  Company Number: IN-VALIDUS PHARMACEUTICALS LLC-IN-2016VAL000017

PATIENT
  Sex: Female
  Weight: 1.7 kg

DRUGS (2)
  1. METOPROLOL TARTRATE. [Suspect]
     Active Substance: METOPROLOL TARTRATE
     Indication: FOETAL EXPOSURE DURING PREGNANCY
     Dosage: (MATERNAL DOSE: 50 MG)
     Route: 064
  2. OXYTOCIN. [Suspect]
     Active Substance: OXYTOCIN
     Indication: FOETAL EXPOSURE DURING PREGNANCY
     Dosage: UNK
     Route: 064

REACTIONS (3)
  - Low birth weight baby [Unknown]
  - Foetal growth restriction [Unknown]
  - Foetal exposure during pregnancy [Recovered/Resolved]
